FAERS Safety Report 16334887 (Version 2)
Quarter: 2019Q3

REPORT INFORMATION
  Report Type: Spontaneous
  Country: DE (occurrence: DE)
  Receive Date: 20190520
  Receipt Date: 20190909
  Transmission Date: 20191004
  Serious: Yes (Other)
  Sender: FDA-Public Use
  Company Number: PHHY2019DE111257

PATIENT
  Age: 50 Year
  Sex: Male

DRUGS (3)
  1. XELODA [Suspect]
     Active Substance: CAPECITABINE
     Indication: COLORECTAL CANCER
     Dosage: UNK (6000 MG D1-D3, 4000MG, 560000MG, 54000MG/D1 - D14, THEN 7-D BREAK)
     Route: 048
  2. OXALIPLATIN. [Suspect]
     Active Substance: OXALIPLATIN
     Indication: COLORECTAL CANCER METASTATIC
     Route: 065
  3. AVASTIN [Suspect]
     Active Substance: BEVACIZUMAB
     Indication: COLORECTAL CANCER METASTATIC
     Dosage: 645 MG, Q3W
     Route: 042
     Dates: start: 20160209, end: 20160818

REACTIONS (14)
  - Myalgia [Recovered/Resolved]
  - Iron deficiency [Not Recovered/Not Resolved]
  - Paraesthesia [Recovered/Resolved]
  - Neutropenia [Recovered/Resolved]
  - Musculoskeletal pain [Recovered/Resolved]
  - Febrile neutropenia [Recovering/Resolving]
  - Neutropenia [Recovered/Resolved]
  - Stoma site haemorrhage [Not Recovered/Not Resolved]
  - Myalgia [Recovered/Resolved]
  - Thrombocytopenia [Recovered/Resolved]
  - Bone pain [Recovered/Resolved]
  - Hypersensitivity [Recovered/Resolved]
  - Altered state of consciousness [Recovered/Resolved]
  - Fatigue [Not Recovered/Not Resolved]

NARRATIVE: CASE EVENT DATE: 20160210
